FAERS Safety Report 22789901 (Version 3)
Quarter: 2024Q1

REPORT INFORMATION
  Report Type: Spontaneous
  Country: US (occurrence: US)
  Receive Date: 20230804
  Receipt Date: 20240221
  Transmission Date: 20240410
  Serious: Yes (Other)
  Sender: FDA-Public Use
  Company Number: US-PFIZER INC-PV202300111310

PATIENT
  Age: 67 Year
  Sex: Female

DRUGS (1)
  1. INLYTA [Suspect]
     Active Substance: AXITINIB
     Indication: Clear cell renal cell carcinoma
     Dosage: 5 MG EVERY 2 HOURS
     Route: 048

REACTIONS (4)
  - Second primary malignancy [Unknown]
  - Throat cancer [Unknown]
  - Oropharyngeal discomfort [Unknown]
  - Off label use [Unknown]
